FAERS Safety Report 4312572-6 (Version None)
Quarter: 2004Q1

REPORT INFORMATION
  Report Type: 
  Country: None (occurrence: None)
  Receive Date: 20040303
  Receipt Date: 20040223
  Transmission Date: 20041129
  Serious: Yes (Hospitalization)
  Sender: FDA-Public Use
  Company Number: US-JNJFOC-20040205040

PATIENT
  Age: 75 Year
  Sex: Female

DRUGS (12)
  1. INFLIXIMAB (INFLIXIMAB, RECOMBINANT) LYOPHILIZED POWDER [Suspect]
     Indication: RHEUMATOID ARTHRITIS
     Dosage: INTRAVENOUS
     Route: 042
     Dates: start: 20000915, end: 20000915
  2. METHOTREXATE [Concomitant]
  3. FOLIC ACID [Concomitant]
  4. COUMADIN [Concomitant]
  5. NEXIUM [Concomitant]
  6. SYNTHROID [Concomitant]
  7. VITAMIN D [Concomitant]
  8. CALCIUM (CALCIUM) [Concomitant]
  9. TYLENOL [Concomitant]
  10. DIGITEC (DIGOXIN) [Concomitant]
  11. LANOXIN [Concomitant]
  12. ALEVE [Concomitant]

REACTIONS (6)
  - ASTHENIA [None]
  - CELLULITIS [None]
  - DYSARTHRIA [None]
  - FALL [None]
  - HAEMOGLOBIN DECREASED [None]
  - WHITE BLOOD CELL COUNT DECREASED [None]
